FAERS Safety Report 6108637-9 (Version None)
Quarter: 2009Q1

REPORT INFORMATION
  Report Type: 
  Country: None (occurrence: None)
  Receive Date: 20090305
  Receipt Date: 20090202
  Transmission Date: 20090719
  Serious: Yes (Hospitalization)
  Sender: FDA-Public Use
  Company Number: 2009S1001908

PATIENT
  Age: 62 Year
  Sex: Female

DRUGS (2)
  1. OMEPRAZOLE [Suspect]
     Indication: HIATUS HERNIA
     Dosage: 20 MG; DAILY
  2. ESOMEPRAZOLE MAGNESIUM [Suspect]
     Indication: HIATUS HERNIA
     Dosage: 40 MG; DAILY

REACTIONS (8)
  - DYSPHAGIA [None]
  - GIARDIASIS [None]
  - HYPOMAGNESAEMIA [None]
  - HYPOPARATHYROIDISM [None]
  - MALABSORPTION [None]
  - PARESIS [None]
  - TREATMENT FAILURE [None]
  - VOMITING [None]
